FAERS Safety Report 9477147 (Version 3)
Quarter: 2013Q4

REPORT INFORMATION
  Report Type: Spontaneous
  Country: US (occurrence: US)
  Receive Date: 20130826
  Receipt Date: 20131002
  Transmission Date: 20140711
  Serious: No
  Sender: FDA-Public Use
  Company Number: US-PFIZER INC-2013238059

PATIENT
  Age: 60 Year
  Sex: Female
  Weight: 53.52 kg

DRUGS (7)
  1. CLINDAMYCIN PHOSPHATE [Suspect]
     Indication: BACTERIAL VAGINOSIS
     Dosage: 5G, 3X/WEEK
     Route: 067
     Dates: start: 20130430
  2. XANAX [Concomitant]
     Indication: SLEEP DISORDER
     Dosage: UNK
  3. TYLENOL WITH CODEINE [Concomitant]
     Indication: PAIN
     Dosage: UNK, AS NEEDED
  4. TYLENOL WITH CODEINE [Concomitant]
     Indication: FIBROMYALGIA
  5. FLEXERIL [Concomitant]
     Indication: PAIN
     Dosage: UNK, AS NEEDED
  6. FLEXERIL [Concomitant]
     Indication: FIBROMYALGIA
  7. ESTRACE [Concomitant]
     Indication: VULVOVAGINAL DRYNESS
     Dosage: 1 G, 2X/WEEK

REACTIONS (8)
  - Poor quality drug administered [Unknown]
  - Product quality issue [Unknown]
  - Malaise [Unknown]
  - Drug dose omission [Unknown]
  - Nausea [Unknown]
  - Abdominal discomfort [Unknown]
  - Vulvovaginal burning sensation [Unknown]
  - Vulvovaginal pruritus [Unknown]
